FAERS Safety Report 8606002-3 (Version None)
Quarter: 2012Q3

REPORT INFORMATION
  Report Type: 
  Country: None (occurrence: None)
  Receive Date: 20120820
  Receipt Date: 20120814
  Transmission Date: 20120928
  Serious: Yes (Hospitalization, Other)
  Sender: FDA-Public Use
  Company Number: US-PFIZER INC-2012054943

PATIENT
  Age: 79 Year
  Sex: Male
  Weight: 81.633 kg

DRUGS (31)
  1. ATENOLOL [Concomitant]
     Dosage: 12.5 MG, UNK
  2. ZANTAC [Concomitant]
     Dosage: 150 MG, 2X/DAY (1 PO BID)
     Route: 048
  3. FLUDROCORTISONE [Concomitant]
     Dosage: 0.1 MG, UNK
  4. ASTELIN [Concomitant]
     Dosage: 137 UG, 1X/DAY (1 SEN Q DAY)
  5. GLYBURIDE [Concomitant]
     Dosage: 5 MG, UNK
  6. LOVASTATIN [Concomitant]
     Dosage: 20 MG, 1X/DAY (1 PO Q DAY)
     Route: 048
  7. PLAVIX [Concomitant]
     Dosage: 75 MG, 1X/DAY (1 PO Q DAY)
     Route: 048
  8. PLAVIX [Concomitant]
     Dosage: 75 MG, UNK
  9. CORDARONE [Concomitant]
     Dosage: 200 MG, 2X/DAY
  10. SYNTHROID [Concomitant]
     Dosage: 75 UG, 1X/DAY
  11. MEGACE [Concomitant]
     Dosage: 80 MG, UNK
  12. MOBIC [Concomitant]
     Dosage: 15 MG, 1X/DAY (1 PO QD)
     Route: 048
  13. NIACIN [Concomitant]
     Dosage: 500 MG, 2X/DAY
     Route: 048
  14. PREDNISONE TAB [Suspect]
     Indication: CHRONIC OBSTRUCTIVE PULMONARY DISEASE
     Dosage: 20 MG, 1X/DAY
     Dates: start: 20120601
  15. RESTORIL [Concomitant]
     Dosage: 15 MG, AS NEEDED (1 PO Q HS PRN)
     Route: 048
  16. LASIX [Concomitant]
     Dosage: 40 MG, 1X/DAY (1 Q DAY)
  17. GLYBURIDE [Concomitant]
     Dosage: 5 MG, 2X/DAY
  18. ACETYLSALICYLIC ACID [Concomitant]
     Dosage: 81 MG, 1X/DAY (1 PO Q DAY)
     Route: 048
  19. LYRICA [Suspect]
     Indication: BACK PAIN
     Dosage: 25 MG, 3X/DAY (1 PO TID)
     Route: 048
  20. LYRICA [Suspect]
     Indication: PAIN IN EXTREMITY
     Dosage: 25 MG, 3X/DAY
     Route: 048
  21. MIRALAX [Concomitant]
     Dosage: UNK
  22. FUROSEMIDE [Concomitant]
     Dosage: 40 MG, UNK
  23. PERIACTIN [Concomitant]
     Dosage: 4 MG, 2X/DAY
  24. NOVOLOG MIX 70/30 [Concomitant]
     Dosage: UNK (S/S BID)
  25. LORATADINE [Concomitant]
     Dosage: UNK
  26. TAMSULOSIN HYDROCHLORIDE [Concomitant]
     Dosage: 0.4 MG, 1X/DAY (1 PO Q DAY)
     Route: 048
  27. AVODART [Concomitant]
     Dosage: 0.5 MG, 1X/DAY (1 PO Q DAY)
     Route: 048
     Dates: end: 20111207
  28. LOVASTATIN [Concomitant]
     Dosage: 40 MG, UNK
  29. ATENOLOL [Concomitant]
     Indication: CARDIAC DISORDER
     Dosage: 25 MG, 1X/DAY (1 PO Q DAY)
     Route: 048
  30. IMDUR [Concomitant]
     Dosage: 60 MG, 1X/DAY (1 PO Q DAY)
     Route: 048
  31. PRILOSEC [Concomitant]
     Indication: GASTRIC DISORDER
     Dosage: 20 MG, UNK

REACTIONS (17)
  - RENAL FAILURE [None]
  - BLOOD GLUCOSE INCREASED [None]
  - CARDIAC FAILURE CONGESTIVE [None]
  - ATRIAL FIBRILLATION [None]
  - GASTROOESOPHAGEAL REFLUX DISEASE [None]
  - FIBROSIS [None]
  - PNEUMONIA [None]
  - LUNG INFECTION [None]
  - LIPIDS INCREASED [None]
  - BENIGN PROSTATIC HYPERPLASIA [None]
  - TRANSIENT ISCHAEMIC ATTACK [None]
  - CHRONIC OBSTRUCTIVE PULMONARY DISEASE [None]
  - POLYMYOSITIS [None]
  - HYPOTHYROIDISM [None]
  - NEPHROLITHIASIS [None]
  - ESCHERICHIA INFECTION [None]
  - NEUROPATHY PERIPHERAL [None]
